FAERS Safety Report 5159045-9 (Version None)
Quarter: 2006Q4

REPORT INFORMATION
  Report Type: 
  Country: None (occurrence: None)
  Receive Date: 20061117
  Receipt Date: 20061107
  Transmission Date: 20070319
  Serious: Yes (Hospitalization, Other)
  Sender: FDA-Public Use
  Company Number: 2006123150

PATIENT
  Age: 47 Year
  Sex: Female
  Weight: 48.5349 kg

DRUGS (8)
  1. CHANTIX [Suspect]
     Indication: SMOKING CESSATION THERAPY
     Dosage: 2 MG (1 MG, 2 IN 1 D)
     Dates: start: 20060924, end: 20061001
  2. MORPHINE [Concomitant]
  3. VIOKASE (PANCRELIPASE) [Concomitant]
  4. LOPID [Concomitant]
  5. TRAZODONE HCL [Concomitant]
  6. XANAX [Concomitant]
  7. INSULIN [Concomitant]
  8. BC POWDER (ACETYLSALICYLIC ACID, CAFFEINE, SALICYLAMIDE) [Concomitant]

REACTIONS (10)
  - ABDOMINAL PAIN UPPER [None]
  - ABNORMAL DREAMS [None]
  - DYSGEUSIA [None]
  - FLATULENCE [None]
  - HEADACHE [None]
  - NAUSEA [None]
  - PANCREATITIS [None]
  - THERAPY NON-RESPONDER [None]
  - VOMITING [None]
  - WEIGHT DECREASED [None]
